FAERS Safety Report 7533213-0 (Version None)
Quarter: 2011Q2

REPORT INFORMATION
  Report Type: 
  Country: None (occurrence: None)
  Receive Date: 20110608
  Receipt Date: 20020621
  Transmission Date: 20111010
  Serious: Yes (Death)
  Sender: FDA-Public Use
  Company Number: PHBS2002CA07399

PATIENT
  Sex: Male

DRUGS (2)
  1. CLOZAPINE [Suspect]
     Route: 048
     Dates: start: 20010823
  2. CLOPIXOL (DECANOATE) [Concomitant]
     Route: 065

REACTIONS (2)
  - HEAT STROKE [None]
  - OCCUPATIONAL EXPOSURE TO EXTREME TEMPERATURE [None]
